FAERS Safety Report 7129335-9 (Version None)
Quarter: 2010Q4

REPORT INFORMATION
  Report Type: 
  Country: None (occurrence: None)
  Receive Date: 20101130
  Receipt Date: 20101117
  Transmission Date: 20110411
  Serious: Yes (Hospitalization)
  Sender: FDA-Public Use
  Company Number: US-WATSON-2010-15062

PATIENT
  Sex: Male

DRUGS (1)
  1. TRELSTAR [Suspect]
     Indication: PROSTATE CANCER
     Dosage: 1 INJECTION Q 3 MONTHS
     Route: 030
     Dates: start: 20091101

REACTIONS (2)
  - ANAEMIA [None]
  - SYNCOPE [None]
